FAERS Safety Report 4491138-1 (Version None)
Quarter: 2004Q3

REPORT INFORMATION
  Report Type: 
  Country: None (occurrence: None)
  Receive Date: 20040927
  Receipt Date: 20040729
  Transmission Date: 20050211
  Serious: No
  Sender: FDA-Public Use
  Company Number: USA040774081

PATIENT
  Age: 52 Year
  Sex: Female
  Weight: 59 kg

DRUGS (9)
  1. STRATTERA [Suspect]
     Indication: MULTIPLE SCLEROSIS
     Dosage: 80 MG
     Dates: start: 20040701
  2. FLUOXETINE [Suspect]
     Indication: DEPRESSION
     Dosage: 60 MG
  3. NITROFURANTOIN [Concomitant]
  4. PROVIGIL [Concomitant]
  5. PREMARIN [Concomitant]
  6. MEDROXYPROGESTERONE [Concomitant]
  7. DITROPAN [Concomitant]
  8. COPAXONE [Concomitant]
  9. IMITREX [Concomitant]

REACTIONS (1)
  - MEDICATION ERROR [None]
